FAERS Safety Report 7996506-9 (Version None)
Quarter: 2011Q4

REPORT INFORMATION
  Report Type: 
  Country: None (occurrence: None)
  Receive Date: 20111220
  Receipt Date: 20111213
  Transmission Date: 20120403
  Serious: Yes (Hospitalization, Other)
  Sender: FDA-Public Use
  Company Number: PHHY2011BE108704

PATIENT
  Age: 70 Year
  Sex: Male

DRUGS (3)
  1. SOTALOL HCL [Suspect]
     Dosage: UNK UKN, UNK
  2. HALOPERIDOL [Suspect]
     Dosage: UNK UKN, UNK
  3. MOXIFLOXACIN [Suspect]
     Dosage: UNK UKN, UNK

REACTIONS (8)
  - ELECTROCARDIOGRAM QT PROLONGED [None]
  - BLOOD CALCIUM DECREASED [None]
  - VENTRICULAR TACHYCARDIA [None]
  - BLOOD POTASSIUM DECREASED [None]
  - ELECTROCARDIOGRAM T WAVE AMPLITUDE DECREASED [None]
  - BLOOD MAGNESIUM DECREASED [None]
  - CHEST PAIN [None]
  - LOSS OF CONSCIOUSNESS [None]
